FAERS Safety Report 25260307 (Version 2)
Quarter: 2025Q2

REPORT INFORMATION
  Report Type: Report from Study
  Country: BR (occurrence: BR)
  Receive Date: 20250501
  Receipt Date: 20250506
  Transmission Date: 20250716
  Serious: Yes (Life-Threatening, Hospitalization, Other)
  Sender: NOVARTIS
  Company Number: BR-002147023-NVSC2025BR071014

PATIENT
  Age: 59 Year
  Sex: Female

DRUGS (2)
  1. KISQALI [Suspect]
     Active Substance: RIBOCICLIB SUCCINATE
     Indication: Product used for unknown indication
     Route: 065
  2. MORPHINE [Concomitant]
     Active Substance: MORPHINE
     Indication: Product used for unknown indication
     Route: 065

REACTIONS (20)
  - Feeling abnormal [Unknown]
  - Spinal pain [Unknown]
  - Metastasis [Unknown]
  - Thrombosis [Unknown]
  - Uterine cancer [Unknown]
  - Metastases to bone [Unknown]
  - Pain in extremity [Not Recovered/Not Resolved]
  - Pain [Not Recovered/Not Resolved]
  - Pelvic pain [Unknown]
  - Limb discomfort [Unknown]
  - Erythema [Not Recovered/Not Resolved]
  - Skin discolouration [Unknown]
  - Sensory loss [Unknown]
  - Limb mass [Unknown]
  - Crying [Unknown]
  - Malaise [Unknown]
  - Heart rate abnormal [Unknown]
  - Agitation [Unknown]
  - Speech disorder [Unknown]
  - Tongue disorder [Unknown]

NARRATIVE: CASE EVENT DATE: 20250401
